FAERS Safety Report 9800944 (Version 3)
Quarter: 2014Q1

REPORT INFORMATION
  Report Type: Spontaneous
  Country: GB (occurrence: GB)
  Receive Date: 20140107
  Receipt Date: 20140307
  Transmission Date: 20141002
  Serious: Yes (Other)
  Sender: FDA-Public Use
  Company Number: GB-JNJFOC-20140101275

PATIENT
  Age: 42 Year
  Sex: Male

DRUGS (4)
  1. STELARA [Suspect]
     Indication: PSORIASIS
     Route: 058
     Dates: start: 20120418
  2. THIAMINE [Concomitant]
     Indication: ALCOHOL USE
     Route: 065
  3. VITAMIN B [Concomitant]
     Indication: ALCOHOL USE
     Route: 065
  4. FLUOXETINE [Concomitant]
     Route: 065

REACTIONS (5)
  - Thyroxine increased [Unknown]
  - Tremor [Unknown]
  - Fatigue [Unknown]
  - Dizziness [Unknown]
  - Anti-thyroid antibody positive [Unknown]
